FAERS Safety Report 8976171 (Version 1)
Quarter: 2012Q4

REPORT INFORMATION
  Report Type: 
  Country: US (occurrence: US)
  Receive Date: 20121220
  Receipt Date: 20121220
  Transmission Date: 20130627
  Serious: Yes (Other)
  Sender: FDA-Public Use
  Company Number: US-PFIZER INC-2012318506

PATIENT
  Age: 71 Year
  Sex: Female
  Weight: 54.42 kg

DRUGS (4)
  1. CELEBREX [Suspect]
     Indication: HAND OSTEOARTHRITIS
     Dosage: 200 mg, daily
     Dates: end: 2012
  2. CELEBREX [Suspect]
     Indication: SPINAL OSTEOARTHRITIS
  3. LEVOXYL [Concomitant]
     Indication: THYROID DISORDER
     Dosage: 0.025 mg, daily
  4. LOVASTATIN [Concomitant]
     Indication: TRIGLYCERIDES ABNORMAL
     Dosage: 20 mg, UNK

REACTIONS (3)
  - Renal impairment [Recovering/Resolving]
  - Osteoarthritis [Not Recovered/Not Resolved]
  - Spinal osteoarthritis [Not Recovered/Not Resolved]
